FAERS Safety Report 4507504-1 (Version None)
Quarter: 2004Q4

REPORT INFORMATION
  Report Type: 
  Country: None (occurrence: None)
  Receive Date: 20041123
  Receipt Date: 20041112
  Transmission Date: 20050328
  Serious: Yes (Other)
  Sender: FDA-Public Use
  Company Number: US-JNJFOC-20041103688

PATIENT
  Sex: Male

DRUGS (18)
  1. INFLIXIMAB [Suspect]
     Indication: RHEUMATOID ARTHRITIS
     Route: 042
  2. METHOTREXATE [Concomitant]
  3. MECLYZINE [Concomitant]
  4. INDEROL [Concomitant]
  5. SKELAXIN [Concomitant]
  6. DIGOXIN [Concomitant]
  7. CODEINE [Concomitant]
  8. MULTI-VITAMIN [Concomitant]
  9. MULTI-VITAMIN [Concomitant]
  10. MULTI-VITAMIN [Concomitant]
  11. MULTI-VITAMIN [Concomitant]
  12. MULTI-VITAMIN [Concomitant]
  13. MULTI-VITAMIN [Concomitant]
  14. MULTI-VITAMIN [Concomitant]
  15. MULTI-VITAMIN [Concomitant]
  16. VITAMIN C [Concomitant]
  17. VITAMIN E [Concomitant]
  18. CALCIUM [Concomitant]

REACTIONS (1)
  - VOCAL CORD NEOPLASM [None]
